FAERS Safety Report 4701740-7 (Version None)
Quarter: 2005Q2

REPORT INFORMATION
  Report Type: 
  Country: None (occurrence: None)
  Receive Date: 20050627
  Receipt Date: 20050614
  Transmission Date: 20051028
  Serious: Yes (Death, Hospitalization)
  Sender: FDA-Public Use
  Company Number: GXKR2005MA01224

PATIENT
  Age: 46 Year
  Sex: Female

DRUGS (3)
  1. ISONIAZID [Suspect]
     Indication: PLEURISY
  2. PYRAZINAMIDE [Suspect]
     Indication: PLEURISY
  3. RIFAMPICIN [Suspect]
     Indication: PLEURISY

REACTIONS (9)
  - ASCITES [None]
  - CONDITION AGGRAVATED [None]
  - CONVULSION [None]
  - GENERAL PHYSICAL HEALTH DETERIORATION [None]
  - HEPATIC ATROPHY [None]
  - HEPATIC ENCEPHALOPATHY [None]
  - HEPATIC FAILURE [None]
  - HYPOGLYCAEMIA [None]
  - LOSS OF CONSCIOUSNESS [None]
